FAERS Safety Report 9282892 (Version 1)
Quarter: 2013Q2

REPORT INFORMATION
  Report Type: Report from Study
  Country: DE (occurrence: DE)
  Receive Date: 20130510
  Receipt Date: 20130510
  Transmission Date: 20140414
  Serious: Yes (Hospitalization)
  Sender: FDA-Public Use
  Company Number: DE-ABBOTT-13P-062-1086423-00

PATIENT
  Sex: Female
  Weight: 90 kg

DRUGS (2)
  1. HUMIRA [Suspect]
     Indication: CROHN^S DISEASE
     Route: 058
     Dates: start: 20110322
  2. PREDNISOLONE [Concomitant]
     Indication: CROHN^S DISEASE
     Dates: start: 201011

REACTIONS (2)
  - Varicose vein [Recovered/Resolved]
  - Vessel perforation [Recovered/Resolved]
